FAERS Safety Report 5977357-3 (Version None)
Quarter: 2008Q4

REPORT INFORMATION
  Report Type: 
  Country: None (occurrence: None)
  Receive Date: 20081201
  Receipt Date: 20081201
  Transmission Date: 20090506
  Serious: Yes (Other)
  Sender: FDA-Public Use
  Company Number: None

PATIENT
  Age: 6 Year
  Sex: Female
  Weight: 27.2158 kg

DRUGS (1)
  1. LUPRON DEPOT [Suspect]
     Dosage: 11.25 MG ONCE/MONTH IM
     Route: 030
     Dates: start: 20081121

REACTIONS (1)
  - WRONG TECHNIQUE IN DRUG USAGE PROCESS [None]
